FAERS Safety Report 6591153-8 (Version None)
Quarter: 2010Q1

REPORT INFORMATION
  Report Type: 
  Country: None (occurrence: None)
  Receive Date: 20100219
  Receipt Date: 20091022
  Transmission Date: 20100710
  Serious: No
  Sender: FDA-Public Use
  Company Number: US-BRISTOL-MYERS SQUIBB COMPANY-14827802

PATIENT
  Age: 51 Year
  Sex: Female
  Weight: 62 kg

DRUGS (2)
  1. KENALOG [Suspect]
     Indication: NODULE
     Dates: start: 20091009
  2. ADVIL [Concomitant]

REACTIONS (5)
  - AGITATION [None]
  - ANXIETY [None]
  - INJECTION SITE PAIN [None]
  - INJECTION SITE PRURITUS [None]
  - INSOMNIA [None]
